FAERS Safety Report 15661691 (Version 1)
Quarter: 2018Q4

REPORT INFORMATION
  Report Type: Spontaneous
  Country: KR (occurrence: KR)
  Receive Date: 20181127
  Receipt Date: 20181127
  Transmission Date: 20190205
  Serious: Yes (Other)
  Sender: FDA-Public Use
  Company Number: KR-BAUSCH-BL-2018-032371

PATIENT
  Age: 43 Year
  Sex: Female

DRUGS (3)
  1. PREDNISOLONE. [Suspect]
     Active Substance: PREDNISOLONE
     Indication: ACUTE POLYNEUROPATHY
     Route: 048
  2. PREDNISOLONE. [Suspect]
     Active Substance: PREDNISOLONE
     Dosage: MAINTENANCE THERAPY
     Route: 048
  3. METHYL-PREDNISOLONE [Concomitant]
     Indication: AUTOIMMUNE HEPATITIS
     Route: 048

REACTIONS (1)
  - Drug ineffective [Unknown]
